FAERS Safety Report 4545975-5 (Version None)
Quarter: 2005Q1

REPORT INFORMATION
  Report Type: 
  Country: None (occurrence: None)
  Receive Date: 20050103
  Receipt Date: 20041216
  Transmission Date: 20050727
  Serious: Yes (Hospitalization)
  Sender: FDA-Public Use
  Company Number: 2004BI001643

PATIENT
  Age: 49 Year
  Sex: Female
  Weight: 58.9676 kg

DRUGS (6)
  1. AVONEX [Suspect]
     Indication: MULTIPLE SCLEROSIS
     Dosage: 30 UG; QW; IM
     Route: 030
  2. AVONEX [Suspect]
     Indication: MULTIPLE SCLEROSIS
     Dosage: 30 UG; QW; IM
     Route: 030
     Dates: start: 20040201
  3. ZANAFLEX [Concomitant]
  4. BACLOFEN [Concomitant]
  5. WELLBUTRIN [Concomitant]
  6. ESTRADIOL [Concomitant]

REACTIONS (5)
  - ASTHENIA [None]
  - CONDITION AGGRAVATED [None]
  - HEADACHE [None]
  - HYPERTENSION [None]
  - MULTIPLE SCLEROSIS [None]
